FAERS Safety Report 11555474 (Version 2)
Quarter: 2018Q2

REPORT INFORMATION
  Report Type: Report from Study
  Country: US (occurrence: US)
  Receive Date: 20150925
  Receipt Date: 20180608
  Transmission Date: 20180711
  Serious: Yes (Life-Threatening)
  Sender: FDA-Public Use
  Company Number: US-EISAI MEDICAL RESEARCH-EC-2015-009522

PATIENT
  Age: 61 Year
  Sex: Female
  Weight: 60 kg

DRUGS (13)
  1. NOVALIN [Concomitant]
     Route: 058
     Dates: start: 2004
  2. LORCASERIN [Suspect]
     Active Substance: LORCASERIN HYDROCHLORIDE
     Indication: WEIGHT CONTROL
     Route: 048
     Dates: start: 20141112, end: 201506
  3. LOSARTAN. [Concomitant]
     Active Substance: LOSARTAN
     Route: 048
     Dates: start: 2004
  4. LORCASERIN [Suspect]
     Active Substance: LORCASERIN HYDROCHLORIDE
     Dosage: OVERDOSE-UNKNOWN HOW MANY TABLETS TAKEN EACH DAY
     Route: 048
     Dates: start: 201506, end: 201506
  5. PLAVIX [Concomitant]
     Active Substance: CLOPIDOGREL BISULFATE
     Route: 048
     Dates: start: 2004
  6. LORCASERIN [Suspect]
     Active Substance: LORCASERIN HYDROCHLORIDE
     Route: 048
     Dates: start: 201506
  7. HUMULIN 70/30 [Concomitant]
     Active Substance: INSULIN HUMAN
     Route: 058
     Dates: start: 2000
  8. SIMVASTATIN. [Concomitant]
     Active Substance: SIMVASTATIN
     Route: 048
     Dates: start: 20150301
  9. FERROUS SULFATE. [Concomitant]
     Active Substance: FERROUS SULFATE
     Route: 048
     Dates: start: 20140617
  10. ULTRACET [Concomitant]
     Active Substance: ACETAMINOPHEN\TRAMADOL HYDROCHLORIDE
     Route: 048
     Dates: start: 20150403
  11. ASPIRIN. [Concomitant]
     Active Substance: ASPIRIN
     Route: 048
     Dates: start: 2004
  12. COREG [Concomitant]
     Active Substance: CARVEDILOL
     Route: 048
     Dates: start: 2004
  13. RANEXA [Concomitant]
     Active Substance: RANOLAZINE
     Route: 048
     Dates: start: 2004

REACTIONS (2)
  - Accidental overdose [Recovered/Resolved]
  - Hypoglycaemia [Recovered/Resolved]

NARRATIVE: CASE EVENT DATE: 201506
